FAERS Safety Report 9863270 (Version 1)
Quarter: 2014Q1

REPORT INFORMATION
  Report Type: Spontaneous
  Country: US (occurrence: US)
  Receive Date: 20140203
  Receipt Date: 20140203
  Transmission Date: 20141002
  Serious: No
  Sender: FDA-Public Use
  Company Number: US-TARO-2013P1019721

PATIENT
  Age: 44 Year
  Sex: Male

DRUGS (2)
  1. NYSTATIN + TRIAMCINOLONE ACETONIDE CREAM USP [Suspect]
     Indication: FUNGAL INFECTION
     Route: 061
     Dates: start: 201307, end: 201308
  2. NYSTATIN + TRIAMCINOLONE ACETONIDE CREAM USP [Suspect]
     Indication: FUNGAL INFECTION
     Route: 061
     Dates: start: 201309

REACTIONS (2)
  - Drug ineffective [Recovering/Resolving]
  - Product quality issue [Not Recovered/Not Resolved]
